FAERS Safety Report 23041441 (Version 1)
Quarter: 2023Q4

REPORT INFORMATION
  Report Type: Spontaneous
  Country: US (occurrence: US)
  Receive Date: 20231007
  Receipt Date: 20231007
  Transmission Date: 20240110
  Serious: Yes (Death, Life-Threatening, Other)
  Sender: FDA-Public Use
  Company Number: US-drreddys-LIT/USA/23/0179314

PATIENT
  Age: 17 Year
  Sex: Female

DRUGS (6)
  1. AZACITIDINE [Suspect]
     Active Substance: AZACITIDINE
     Indication: Myelodysplastic syndrome
     Dosage: 2 CYCLES
  2. AZACITIDINE [Suspect]
     Active Substance: AZACITIDINE
     Dosage: 1 CYCLE WITH AZACITIDINE AND VENETOCLAX
  3. SIROLIMUS [Suspect]
     Active Substance: SIROLIMUS
     Indication: Prophylaxis against graft versus host disease
  4. CYCLOPHOSPHAMIDE [Suspect]
     Active Substance: CYCLOPHOSPHAMIDE
     Indication: Prophylaxis against graft versus host disease
  5. MYCOPHENOLATE MOFETIL [Suspect]
     Active Substance: MYCOPHENOLATE MOFETIL
     Indication: Prophylaxis against graft versus host disease
  6. VENETOCLAX [Suspect]
     Active Substance: VENETOCLAX
     Indication: Myelodysplastic syndrome
     Dosage: 1 CYCLE WITH AZACITIDINE AND VENETOCLAX

REACTIONS (11)
  - Myelodysplastic syndrome [Fatal]
  - Disease recurrence [Unknown]
  - Drug ineffective [Unknown]
  - Acute myeloid leukaemia [Unknown]
  - Graft versus host disease in skin [Unknown]
  - Condition aggravated [Unknown]
  - Polyomavirus viraemia [Unknown]
  - Chronic sinusitis [Unknown]
  - Nausea [Unknown]
  - Vomiting [Unknown]
  - Product use in unapproved indication [Unknown]
